FAERS Safety Report 6686051-5 (Version None)
Quarter: 2010Q2

REPORT INFORMATION
  Report Type: 
  Country: None (occurrence: None)
  Receive Date: 20100414
  Receipt Date: 20100329
  Transmission Date: 20101027
  Serious: Yes (Hospitalization)
  Sender: FDA-Public Use
  Company Number: 1-21958705

PATIENT
  Age: 62 Year
  Sex: Male
  Weight: 81.6475 kg

DRUGS (3)
  1. SOLODYN ER TABLET [Suspect]
     Indication: FOLLICULITIS
     Dosage: 115 MG ONCE DAILY, ORAL
     Route: 048
     Dates: start: 20100301, end: 20100317
  2. EYE VITAMINS [Concomitant]
  3. TRIPLE OMEGA [Concomitant]

REACTIONS (6)
  - CHEST PAIN [None]
  - CORONARY ARTERY OCCLUSION [None]
  - HEADACHE [None]
  - PNEUMONIA [None]
  - PYREXIA [None]
  - VIRAL INFECTION [None]
